FAERS Safety Report 5580520-7 (Version None)
Quarter: 2008Q1

REPORT INFORMATION
  Report Type: 
  Country: None (occurrence: None)
  Receive Date: 20080103
  Receipt Date: 20071227
  Transmission Date: 20080703
  Serious: Yes (Hospitalization)
  Sender: FDA-Public Use
  Company Number: US-ELI_LILLY_AND_COMPANY-US200712005134

PATIENT
  Age: 86 Year
  Sex: Female

DRUGS (7)
  1. HUMULIN N [Suspect]
     Indication: DIABETES MELLITUS
     Dosage: 22 U, EACH MORNING
  2. HUMULIN N [Suspect]
     Dosage: 20 U, EACH EVENING
  3. HUMULIN R [Suspect]
     Indication: DIABETES MELLITUS
     Dosage: 7 U, 2/D
  4. CLONIDINE [Concomitant]
     Indication: HYPERTENSION
     Dosage: 0.1 MG, AS NEEDED
  5. CALAN [Concomitant]
     Indication: HYPERTENSION
     Dosage: 240 MG, 2/D
  6. DIOVAN [Concomitant]
     Indication: HYPERTENSION
     Dosage: UNK, DAILY (1/D)
  7. XANAX [Concomitant]
     Dosage: 0.25 MG, AS NEEDED

REACTIONS (2)
  - HYPERTENSION [None]
  - INCORRECT DOSE ADMINISTERED [None]
